FAERS Safety Report 8370218-4 (Version None)
Quarter: 2012Q2

REPORT INFORMATION
  Report Type: 
  Country: None (occurrence: None)
  Receive Date: 20120518
  Receipt Date: 20120515
  Transmission Date: 20120825
  Serious: Yes (Death, Other)
  Sender: FDA-Public Use
  Company Number: US-ELI_LILLY_AND_COMPANY-US201205005480

PATIENT
  Age: 53 Year
  Sex: Male

DRUGS (3)
  1. EFFIENT [Suspect]
     Indication: STENT PLACEMENT
     Dosage: UNK
  2. EFFIENT [Suspect]
     Dosage: UNK
  3. INTEGRILIN [Concomitant]

REACTIONS (3)
  - CORONARY ARTERY THROMBOSIS [None]
  - CORONARY ARTERY OCCLUSION [None]
  - ADVERSE EVENT [None]
